FAERS Safety Report 6865762-2 (Version None)
Quarter: 2010Q3

REPORT INFORMATION
  Report Type: 
  Country: None (occurrence: None)
  Receive Date: 20100721
  Receipt Date: 20080716
  Transmission Date: 20110219
  Serious: No
  Sender: FDA-Public Use
  Company Number: US-PFIZER INC-2008037494

PATIENT
  Sex: Female
  Weight: 78.93 kg

DRUGS (3)
  1. CHANTIX [Suspect]
     Indication: SMOKING CESSATION THERAPY
     Route: 048
     Dates: start: 20080421
  2. OMEPRAZOLE [Concomitant]
  3. LIPITOR [Concomitant]

REACTIONS (3)
  - FEELING HOT [None]
  - HYPERHIDROSIS [None]
  - MALAISE [None]
